FAERS Safety Report 14482112 (Version 16)
Quarter: 2018Q3

REPORT INFORMATION
  Report Type: Spontaneous
  Country: IT (occurrence: IT)
  Receive Date: 20180202
  Receipt Date: 20180813
  Transmission Date: 20181010
  Serious: Yes (Other)
  Sender: FDA-Public Use
  Company Number: IT-PFIZER INC-2018044899

PATIENT
  Age: 43 Year
  Sex: Male

DRUGS (4)
  1. VALPROATE [Concomitant]
     Active Substance: VALPROIC ACID
     Indication: ANXIETY DISORDER
     Dosage: 500 MG, DAILY
  2. PREGABALIN. [Suspect]
     Active Substance: PREGABALIN
     Indication: ANXIETY
     Dosage: 300 MG, DAILY
  3. PREGABALIN. [Suspect]
     Active Substance: PREGABALIN
     Indication: ALCOHOLISM
     Dosage: 1800 MG, DAILY
  4. PREGABALIN. [Suspect]
     Active Substance: PREGABALIN
     Indication: BACK PAIN
     Dosage: 225 MG, DAILY

REACTIONS (4)
  - Drug dependence [Recovering/Resolving]
  - Drug tolerance [Recovering/Resolving]
  - Intentional overdose [Recovering/Resolving]
  - Drug abuse [Recovering/Resolving]
